FAERS Safety Report 9581013 (Version 1)
Quarter: 2013Q4

REPORT INFORMATION
  Report Type: Spontaneous
  Country: US (occurrence: US)
  Receive Date: 20131002
  Receipt Date: 20131002
  Transmission Date: 20140711
  Serious: No
  Sender: FDA-Public Use
  Company Number: US-009507513-1309USA011022

PATIENT
  Sex: Female

DRUGS (10)
  1. JANUMET [Suspect]
     Indication: DIABETES MELLITUS
     Dosage: 1 TABLET/TWICE A DAY
     Route: 048
  2. SYMBICORT [Concomitant]
  3. ZOCOR [Concomitant]
     Route: 048
  4. ZANTAC [Concomitant]
  5. VALIUM [Concomitant]
  6. DILTIAZEM HYDROCHLORIDE [Concomitant]
     Route: 048
  7. MELOXICAM [Concomitant]
  8. COZAAR [Concomitant]
     Route: 048
  9. ASPIRIN [Concomitant]
     Route: 048
  10. ELAVIL (MADE BY MERCK, MARKETED BY ZENECA) [Concomitant]
     Dosage: UNK
     Route: 048

REACTIONS (2)
  - Blood glucose abnormal [Not Recovered/Not Resolved]
  - Drug dose omission [Unknown]
